FAERS Safety Report 7204538-3 (Version None)
Quarter: 2010Q4

REPORT INFORMATION
  Report Type: 
  Country: None (occurrence: None)
  Receive Date: 20101230
  Receipt Date: 20101217
  Transmission Date: 20110411
  Serious: Yes (Life-Threatening, Hospitalization)
  Sender: FDA-Public Use
  Company Number: PHHY2010US86188

PATIENT
  Sex: Female
  Weight: 69 kg

DRUGS (4)
  1. TEKTURNA [Suspect]
     Indication: HYPERTENSION
     Dosage: 300 MG DAILY
     Route: 048
     Dates: start: 20100119, end: 20100226
  2. TEKTURNA [Suspect]
     Dosage: 150  MG DAILY
     Route: 048
     Dates: start: 20100226, end: 20100826
  3. AMBIEN [Concomitant]
  4. ZEGERID [Concomitant]

REACTIONS (13)
  - BLOOD PRESSURE INCREASED [None]
  - CHILLS [None]
  - DECREASED APPETITE [None]
  - FATIGUE [None]
  - FEELING COLD [None]
  - HEPATIC ENZYME INCREASED [None]
  - HEPATITIS [None]
  - JAUNDICE [None]
  - LIVER DISORDER [None]
  - MALAISE [None]
  - NERVOUSNESS [None]
  - TREMOR [None]
  - WEIGHT DECREASED [None]
